FAERS Safety Report 9080493 (Version 2)
Quarter: 2013Q1

REPORT INFORMATION
  Report Type: Spontaneous
  Country: SE (occurrence: SE)
  Receive Date: 20130218
  Receipt Date: 20130304
  Transmission Date: 20140127
  Serious: Yes (Death)
  Sender: FDA-Public Use
  Company Number: PHHY2013SE015393

PATIENT
  Sex: Male

DRUGS (2)
  1. VOLTAREN [Suspect]
     Indication: ABDOMINAL PAIN UPPER
     Dosage: UNK UKN, UNK
  2. GLYCERIN [Concomitant]

REACTIONS (2)
  - Death [Fatal]
  - Muscle spasms [Unknown]
